FAERS Safety Report 26111948 (Version 2)
Quarter: 2025Q4

REPORT INFORMATION
  Report Type: Spontaneous
  Country: US (occurrence: US)
  Receive Date: 20251202
  Receipt Date: 20251208
  Transmission Date: 20260117
  Serious: No
  Sender: CSL BEHRING
  Company Number: US-CSL-15953

PATIENT
  Age: 67 Year
  Sex: Female

DRUGS (6)
  1. HIZENTRA [Suspect]
     Active Substance: HUMAN IMMUNOGLOBULIN G
     Indication: Immunodeficiency common variable
     Dosage: 1 G, QW
     Route: 058
     Dates: start: 201611
  2. HIZENTRA [Suspect]
     Active Substance: HUMAN IMMUNOGLOBULIN G
     Dosage: 4 G, QW
     Route: 058
     Dates: start: 201611
  3. HIZENTRA [Suspect]
     Active Substance: HUMAN IMMUNOGLOBULIN G
     Dosage: 2 G, QW
     Route: 058
     Dates: start: 201611
  4. HIZENTRA [Suspect]
     Active Substance: HUMAN IMMUNOGLOBULIN G
     Dosage: UNK
     Route: 065
     Dates: start: 20251119
  5. TEZSPIRE [Concomitant]
     Active Substance: TEZEPELUMAB-EKKO
  6. TOBRAMYCIN [Concomitant]
     Active Substance: TOBRAMYCIN

REACTIONS (2)
  - Pruritus [Unknown]
  - Unevaluable event [Unknown]

NARRATIVE: CASE EVENT DATE: 20251101
